FAERS Safety Report 6240807-1 (Version None)
Quarter: 2009Q2

REPORT INFORMATION
  Report Type: 
  Country: None (occurrence: None)
  Receive Date: 20090623
  Receipt Date: 20090611
  Transmission Date: 20091009
  Serious: Yes (Other)
  Sender: FDA-Public Use
  Company Number: US-ELI_LILLY_AND_COMPANY-US200906002913

PATIENT
  Sex: Female

DRUGS (4)
  1. EVISTA [Suspect]
     Dosage: 60 MG, DAILY (1/D)
     Route: 065
     Dates: end: 20040801
  2. MULTI-VITAMIN [Concomitant]
     Dosage: UNK, UNKNOWN
     Route: 065
  3. ESTROGEN NOS [Concomitant]
     Dosage: UNK, UNKNOWN
     Route: 065
  4. CAFERGOT [Concomitant]
     Indication: MIGRAINE
     Dosage: UNK, UNKNOWN
     Route: 065

REACTIONS (1)
  - MACULAR DEGENERATION [None]
